FAERS Safety Report 21693734 (Version 3)
Quarter: 2023Q1

REPORT INFORMATION
  Report Type: Report from Study
  Country: FR (occurrence: FR)
  Receive Date: 20221207
  Receipt Date: 20230120
  Transmission Date: 20230418
  Serious: Yes (Hospitalization)
  Sender: FDA-Public Use
  Company Number: FR-SERVIER-S22012432

PATIENT

DRUGS (8)
  1. PEGASPARGASE [Suspect]
     Active Substance: PEGASPARGASE
     Indication: Acute lymphocytic leukaemia
     Dosage: 975 [IU], D8, D36
     Route: 042
     Dates: start: 20220208
  2. DEXAMETHASONE [Suspect]
     Active Substance: DEXAMETHASONE
     Indication: Acute lymphocytic leukaemia
     Dosage: 5 MG, D1 TO D5, D29 TO D33, UNSPECIFIED
     Route: 048
     Dates: start: 20220201
  3. MERCAPTOPURINE [Suspect]
     Active Substance: MERCAPTOPURINE
     Indication: Acute lymphocytic leukaemia
     Dosage: 42 MG, D1 TO D21, D29 TO D49 AND UNSPECIFIED
     Route: 048
     Dates: start: 20220201
  4. VINCRISTINE [Suspect]
     Active Substance: VINCRISTINE
     Indication: Acute lymphocytic leukaemia
     Dosage: 1.2 MG, D1, D8, D29, D36 AND UNSPECIFIED
     Route: 042
     Dates: start: 20220201
  5. METHOTREXATE [Suspect]
     Active Substance: METHOTREXATE
     Indication: Acute lymphocytic leukaemia
     Dosage: 12 MG, D2, D30 AND UNSPECIFIED
     Route: 037
     Dates: start: 20220202
  6. METHOTREXATE [Suspect]
     Active Substance: METHOTREXATE
     Dosage: 20 MG, D8, D15, D22, D36, D43, D50
     Route: 048
     Dates: start: 20220208
  7. AMPHOTERICIN B [Suspect]
     Active Substance: AMPHOTERICIN B
     Indication: Mucormycosis
     Dosage: UNK
     Route: 065
  8. POTASSIUM [Suspect]
     Active Substance: POTASSIUM
     Indication: Hypokalaemia
     Dosage: UNK
     Route: 065

REACTIONS (2)
  - Dehydration [Recovered/Resolved]
  - Diet refusal [Recovered/Resolved]

NARRATIVE: CASE EVENT DATE: 20220404
